FAERS Safety Report 15010768 (Version 1)
Quarter: 2018Q2

REPORT INFORMATION
  Report Type: Spontaneous
  Country: NL (occurrence: NL)
  Receive Date: 20180614
  Receipt Date: 20180614
  Transmission Date: 20180711
  Serious: Yes (Hospitalization, Other)
  Sender: FDA-Public Use
  Company Number: NL-AUROBINDO-AUR-APL-2018-031201

PATIENT
  Age: 76 Year
  Sex: Male

DRUGS (1)
  1. AMOXICILLIN+CLAVULANIC ACID [Suspect]
     Active Substance: AMOXICILLIN\CLAVULANIC ACID
     Indication: CYSTITIS
     Dosage: UNK UNK, UNKNOWN FREQ
     Route: 065

REACTIONS (8)
  - Pyelonephritis [Recovered/Resolved]
  - Sepsis [Unknown]
  - Anuria [Unknown]
  - Oxygen saturation decreased [Recovered/Resolved]
  - Urosepsis [Recovered/Resolved]
  - Livedo reticularis [Recovered/Resolved]
  - Chills [Unknown]
  - Fatigue [Unknown]
